FAERS Safety Report 18714398 (Version 1)
Quarter: 2021Q1

REPORT INFORMATION
  Report Type: Spontaneous
  Country: US (occurrence: US)
  Receive Date: 20210107
  Receipt Date: 20210107
  Transmission Date: 20210419
  Serious: Yes (Hospitalization, Other)
  Sender: FDA-Public Use
  Company Number: US-PURDUE-USA-2020-0195683

PATIENT
  Age: 57 Year
  Sex: Female

DRUGS (2)
  1. OXYCODONE HCL CR TABLETS (SIMILAR TO NDA 22?272) [Suspect]
     Active Substance: OXYCODONE HYDROCHLORIDE
     Indication: PAIN
     Dosage: UNK, (4?6 HOURS) DAILY
     Route: 048
  2. OXYCONTIN [Suspect]
     Active Substance: OXYCODONE HYDROCHLORIDE
     Indication: PAIN
     Dosage: UNK, (4?6 HOURS) DAILY
     Route: 048

REACTIONS (11)
  - Pneumonia [Not Recovered/Not Resolved]
  - Gastrointestinal haemorrhage [Unknown]
  - Anxiety [Unknown]
  - Chronic obstructive pulmonary disease [Unknown]
  - Respiratory distress [Not Recovered/Not Resolved]
  - Drug dependence [Unknown]
  - Anaemia [Unknown]
  - Atrial flutter [Unknown]
  - Depression [Unknown]
  - Septic shock [Not Recovered/Not Resolved]
  - Acute respiratory failure [Not Recovered/Not Resolved]

NARRATIVE: CASE EVENT DATE: 20191223
